FAERS Safety Report 11151030 (Version 1)
Quarter: 2015Q2

REPORT INFORMATION
  Report Type: Spontaneous
  Country: US (occurrence: None)
  Receive Date: 20150528
  Receipt Date: 20150528
  Transmission Date: 20150821
  Serious: No
  Sender: FDA-Public Use
  Company Number: 1210513-2015-00126

PATIENT
  Age: 36 Year
  Sex: Female
  Weight: 91.63 kg

DRUGS (1)
  1. WALMART EQUATE ORASOL  (SHEFFIELD PHARMACEUTICALS) [Suspect]
     Active Substance: BENZOCAINE
     Indication: ANALGESIC THERAPY
     Dosage: 1X PER DAY ORALLY
     Route: 048
     Dates: start: 20150401, end: 20150418

REACTIONS (1)
  - Urticaria [None]

NARRATIVE: CASE EVENT DATE: 20150418
